FAERS Safety Report 18274933 (Version 1)
Quarter: 2020Q3

REPORT INFORMATION
  Report Type: Spontaneous
  Country: IN (occurrence: IN)
  Receive Date: 20200917
  Receipt Date: 20200917
  Transmission Date: 20201103
  Serious: Yes (Death, Other)
  Sender: FDA-Public Use
  Company Number: IN-BAUSCH-BL-2020-026152

PATIENT
  Age: 35 Year
  Sex: Male

DRUGS (3)
  1. PENICILLAMINE [Suspect]
     Active Substance: PENICILLAMINE
     Indication: HEPATO-LENTICULAR DEGENERATION
     Route: 065
     Dates: start: 2020, end: 2020
  2. ZINC. [Concomitant]
     Active Substance: ZINC
     Dosage: DOSE INCREASED
     Dates: start: 2020
  3. ZINC. [Concomitant]
     Active Substance: ZINC
     Indication: HEPATO-LENTICULAR DEGENERATION
     Dosage: UNDERGOING IN 2020

REACTIONS (2)
  - Cerebral haemorrhage [Not Recovered/Not Resolved]
  - Pancytopenia [Not Recovered/Not Resolved]

NARRATIVE: CASE EVENT DATE: 2020
